FAERS Safety Report 7162059-0 (Version None)
Quarter: 2010Q4

REPORT INFORMATION
  Report Type: 
  Country: None (occurrence: None)
  Receive Date: 20101215
  Receipt Date: 20090727
  Transmission Date: 20110411
  Serious: Yes (Other)
  Sender: FDA-Public Use
  Company Number: US-PFIZER INC-2009238070

PATIENT
  Sex: Female
  Weight: 86.168 kg

DRUGS (10)
  1. NEURONTIN [Suspect]
     Indication: PAIN IN EXTREMITY
     Dosage: 300 MG, 1X/DAY
     Dates: start: 20070611
  2. LYRICA [Suspect]
     Indication: DIABETIC NEUROPATHY
     Dosage: 75 MG, 2X/DAY
     Route: 048
     Dates: start: 20090701
  3. LYRICA [Suspect]
     Dosage: 50 MG, 2X/DAY
     Dates: start: 20090616, end: 20090701
  4. GLIMEPIRIDE [Concomitant]
     Dosage: UNK
     Route: 048
  5. INSULIN DETEMIR [Concomitant]
     Indication: DIABETES MELLITUS
     Dosage: 55 UNITS, EVERY NIGHT
     Route: 048
  6. SYMBYAX [Concomitant]
     Indication: ANXIETY
     Dosage: 6/25MG, DAILY
     Route: 048
  7. COREG [Concomitant]
     Dosage: UNK
     Route: 048
     Dates: start: 20070328
  8. LISINOPRIL [Concomitant]
     Indication: HYPERTENSION
     Dosage: 40 MG, 1X/DAY
     Dates: start: 20090616
  9. LISINOPRIL [Concomitant]
     Dosage: 40 MG, 2X/DAY
     Route: 048
     Dates: start: 20070416, end: 20090616
  10. ASPIRIN [Concomitant]
     Dosage: 81 MG, 1X/DAY

REACTIONS (7)
  - BLOOD GLUCOSE INCREASED [None]
  - BLOOD PRESSURE INCREASED [None]
  - CONFUSIONAL STATE [None]
  - DRUG INEFFECTIVE [None]
  - INCREASED APPETITE [None]
  - OEDEMA PERIPHERAL [None]
  - VISION BLURRED [None]
